FAERS Safety Report 17560186 (Version 1)
Quarter: 2020Q1

REPORT INFORMATION
  Report Type: Spontaneous
  Country: US (occurrence: US)
  Receive Date: 20200311
  Receipt Date: 20200311
  Transmission Date: 20200409
  Serious: Yes (Hospitalization)
  Sender: FDA-Public Use
  Company Number: None

PATIENT
  Age: 65 Year
  Sex: Female

DRUGS (7)
  1. FUROSEMIDE. [Concomitant]
     Active Substance: FUROSEMIDE
  2. AMBRISENTAN 10MG TABLETS 30/BO: 10MG [Suspect]
     Active Substance: AMBRISENTAN
     Indication: HEART DISEASE CONGENITAL
     Route: 048
     Dates: start: 201609
  3. TORSEMIDE. [Concomitant]
     Active Substance: TORSEMIDE
  4. TADALAFIL. [Concomitant]
     Active Substance: TADALAFIL
  5. BACLOPHEN [Concomitant]
  6. SPIRONOLACTONE. [Concomitant]
     Active Substance: SPIRONOLACTONE
  7. PRADAXA [Concomitant]
     Active Substance: DABIGATRAN ETEXILATE MESYLATE

REACTIONS (3)
  - Chronic respiratory failure [None]
  - Chronic obstructive pulmonary disease [None]
  - Pericardial effusion [None]

NARRATIVE: CASE EVENT DATE: 20200304
